FAERS Safety Report 18882514 (Version 1)
Quarter: 2021Q1

REPORT INFORMATION
  Report Type: Spontaneous
  Country: US (occurrence: US)
  Receive Date: 20210211
  Receipt Date: 20210211
  Transmission Date: 20210420
  Serious: No
  Sender: FDA-Public Use
  Company Number: US-PERRIGO-20US007470

PATIENT
  Age: 15 Year
  Sex: Female
  Weight: 43.08 kg

DRUGS (4)
  1. PROVENTIL HFA [Concomitant]
     Active Substance: ALBUTEROL SULFATE
     Indication: ASTHMA
     Dosage: UNK, PRN
     Route: 055
  2. CETIRIZINE HYDROCHLORIDE. [Suspect]
     Active Substance: CETIRIZINE HYDROCHLORIDE
     Indication: DUST ALLERGY
     Dosage: 10 MG, TWICE IN 12 HOURS
     Route: 048
     Dates: start: 20200519, end: 20200520
  3. CETIRIZINE HYDROCHLORIDE. [Suspect]
     Active Substance: CETIRIZINE HYDROCHLORIDE
     Indication: SEASONAL ALLERGY
     Dosage: 10 MG, NIGHTLY
     Route: 048
  4. ALEVE [Concomitant]
     Active Substance: NAPROXEN SODIUM
     Indication: DYSMENORRHOEA
     Dosage: UNK, PRN
     Route: 048

REACTIONS (1)
  - Wrong product administered [Recovered/Resolved]

NARRATIVE: CASE EVENT DATE: 20200520
